FAERS Safety Report 11322324 (Version 2)
Quarter: 2015Q3

REPORT INFORMATION
  Report Type: Spontaneous
  Country: FR (occurrence: None)
  Receive Date: 20150728
  Receipt Date: 20150812
  Transmission Date: 20151125
  Serious: Yes (Other)
  Sender: FDA-Public Use
  Company Number: CO-UX-FR-2015-020

PATIENT
  Age: 45 Year
  Sex: Male

DRUGS (2)
  1. XATRAL [Suspect]
     Active Substance: ALFUZOSIN
     Route: 048
     Dates: start: 20141013, end: 20150523
  2. PERMIXON (160 MILLIGRAM, CAPSULE) )SERENOA REPENS EXTRACT) [Suspect]
     Active Substance: SAW PALMETTO
     Route: 048
     Dates: start: 20141013, end: 20150523

REACTIONS (3)
  - Road traffic accident [None]
  - Sleep apnoea syndrome [None]
  - Somnolence [None]

NARRATIVE: CASE EVENT DATE: 20150513
